FAERS Safety Report 20382871 (Version 1)
Quarter: 2022Q1

REPORT INFORMATION
  Report Type: Spontaneous
  Country: DE (occurrence: DE)
  Receive Date: 20220127
  Receipt Date: 20220127
  Transmission Date: 20220423
  Serious: Yes (Other)
  Sender: FDA-Public Use
  Company Number: DE-UCBSA-2022001377

PATIENT
  Age: 72 Year
  Sex: Male

DRUGS (1)
  1. VIMPAT [Suspect]
     Active Substance: LACOSAMIDE
     Indication: Seizure
     Dosage: 100 MILLIGRAM, 2X/DAY (BID)
     Dates: start: 202112

REACTIONS (8)
  - Thyroid function test abnormal [Unknown]
  - Dizziness [Unknown]
  - Headache [Unknown]
  - Constipation [Unknown]
  - Disturbance in attention [Unknown]
  - Balance disorder [Unknown]
  - Disorientation [Unknown]
  - Tachycardia [Unknown]
